FAERS Safety Report 9512494 (Version 2)
Quarter: 2013Q3

REPORT INFORMATION
  Report Type: Spontaneous
  Country: US (occurrence: US)
  Receive Date: 20130910
  Receipt Date: 20130923
  Transmission Date: 20140515
  Serious: Yes (Other)
  Sender: FDA-Public Use
  Company Number: US-PFIZER INC-2013256762

PATIENT
  Age: 84 Year
  Sex: Female

DRUGS (1)
  1. XALATAN [Suspect]
     Indication: OPEN ANGLE GLAUCOMA
     Dosage: 1 DROP, UNK
     Route: 047
     Dates: start: 20040204

REACTIONS (1)
  - Cardiac failure congestive [Unknown]
